FAERS Safety Report 10672525 (Version 1)
Quarter: 2014Q4

REPORT INFORMATION
  Report Type: Spontaneous
  Country: DE (occurrence: DE)
  Receive Date: 20141223
  Receipt Date: 20141223
  Transmission Date: 20150529
  Serious: Yes (Other)
  Sender: FDA-Public Use
  Company Number: DE-MUNDIPHARMA DS AND PHARMACOVIGILANCE-DEU-2014-0015966

PATIENT
  Age: 58 Year
  Sex: Male

DRUGS (6)
  1. OXYGESIC 20 MG [Suspect]
     Active Substance: OXYCODONE HYDROCHLORIDE
     Indication: PAIN
     Dosage: 20 MG, Q6H
     Route: 048
     Dates: end: 2011
  2. OXYGESIC 20 MG [Suspect]
     Active Substance: OXYCODONE HYDROCHLORIDE
     Dosage: 1 DF, Q12H
     Route: 048
     Dates: start: 2004
  3. LYRICA [Suspect]
     Active Substance: PREGABALIN
     Dosage: 1200 MG, DAILY
     Route: 065
  4. LYRICA [Suspect]
     Active Substance: PREGABALIN
     Indication: PRODUCT USED FOR UNKNOWN INDICATION
     Dosage: 600 MG, DAILY
     Route: 065
  5. PALLADON [Suspect]
     Active Substance: HYDROMORPHONE
     Indication: PAIN
     Dosage: 48 MG, DAILY
     Route: 048
  6. HYDROMORPHONE [Suspect]
     Active Substance: HYDROMORPHONE
     Indication: PAIN
     Dosage: 20 MG, BID
     Route: 048
     Dates: start: 2011

REACTIONS (9)
  - Yawning [Unknown]
  - Diarrhoea [Unknown]
  - Lacrimation increased [Unknown]
  - Somnolence [None]
  - Drug tolerance [Unknown]
  - Rhinorrhoea [Unknown]
  - Chills [Unknown]
  - Narcolepsy [Not Recovered/Not Resolved]
  - Drug intolerance [None]
